FAERS Safety Report 24393055 (Version 2)
Quarter: 2024Q4

REPORT INFORMATION
  Report Type: Spontaneous
  Country: FR (occurrence: FR)
  Receive Date: 20241003
  Receipt Date: 20241004
  Transmission Date: 20250115
  Serious: Yes (Hospitalization, Other)
  Sender: MERCK
  Company Number: FR-009507513-2410FRA000143

PATIENT
  Age: 60 Year
  Sex: Female

DRUGS (1)
  1. KEYTRUDA [Suspect]
     Active Substance: PEMBROLIZUMAB
     Indication: Triple negative breast cancer
     Dosage: 200 MILLIGRAM, Q3W

REACTIONS (7)
  - Chest pain [Unknown]
  - Chest discomfort [Unknown]
  - Pericardial effusion [Unknown]
  - Pericarditis [Unknown]
  - Lung disorder [Unknown]
  - Cough [Unknown]
  - Herpes zoster [Unknown]
